FAERS Safety Report 19719748 (Version 1)
Quarter: 2021Q3

REPORT INFORMATION
  Report Type: Spontaneous
  Country: KR (occurrence: KR)
  Receive Date: 20210818
  Receipt Date: 20210818
  Transmission Date: 20211014
  Serious: No
  Sender: FDA-Public Use
  Company Number: KR-LUPIN PHARMACEUTICALS INC.-2021-14990

PATIENT
  Age: 36 Year
  Sex: Male

DRUGS (2)
  1. RABEPRAZOLE [Suspect]
     Active Substance: RABEPRAZOLE
     Indication: PRODUCT USED FOR UNKNOWN INDICATION
     Dosage: UNK, (POWDER; ABSORBED INTO SKIN BY AIRBORNE EXPOSURE)
     Route: 065
  2. PANTOPRAZOLE [Suspect]
     Active Substance: PANTOPRAZOLE
     Indication: PRODUCT USED FOR UNKNOWN INDICATION
     Dosage: UNK, (ABSORBED INTO SKIN BY AIRBORNE EXPOSURE)
     Route: 065

REACTIONS (3)
  - Occupational exposure to product [Unknown]
  - Vitiligo [Recovering/Resolving]
  - Dermatitis contact [Recovering/Resolving]
